FAERS Safety Report 11825728 (Version 1)
Quarter: 2015Q4

REPORT INFORMATION
  Report Type: Spontaneous
  Country: US (occurrence: US)
  Receive Date: 20151211
  Receipt Date: 20151211
  Transmission Date: 20160305
  Serious: No
  Sender: FDA-Public Use
  Company Number: US-JNJFOC-20150619179

PATIENT
  Age: 72 Year
  Sex: Male

DRUGS (2)
  1. IMBRUVICA [Suspect]
     Active Substance: IBRUTINIB
     Indication: CHRONIC LYMPHOCYTIC LEUKAEMIA
     Route: 048
     Dates: start: 20141017
  2. IMBRUVICA [Suspect]
     Active Substance: IBRUTINIB
     Indication: CHRONIC LYMPHOCYTIC LEUKAEMIA
     Route: 048

REACTIONS (7)
  - Lymphoedema [Unknown]
  - Incorrect dose administered [Not Recovered/Not Resolved]
  - Dysphonia [Unknown]
  - Oral mucosal blistering [Unknown]
  - Arthralgia [Unknown]
  - Cough [Unknown]
  - Oedema [Unknown]

NARRATIVE: CASE EVENT DATE: 20141017
